FAERS Safety Report 12491845 (Version 1)
Quarter: 2016Q2

REPORT INFORMATION
  Report Type: Spontaneous
  Country: FR (occurrence: FR)
  Receive Date: 20160623
  Receipt Date: 20160623
  Transmission Date: 20160815
  Serious: Yes (Other)
  Sender: FDA-Public Use
  Company Number: FR-ACCORD-041667

PATIENT
  Age: 34 Year
  Sex: Male

DRUGS (4)
  1. DOXORUBICIN [Concomitant]
     Active Substance: DOXORUBICIN
     Indication: THYMOMA
  2. CYCLOPHOSPHAMIDE/CYCLOPHOSPHAMIDE MONOHYDRATE [Concomitant]
     Indication: THYMOMA
  3. ETOPOSIDE. [Concomitant]
     Active Substance: ETOPOSIDE
     Indication: THYMOMA
  4. CISPLATIN. [Suspect]
     Active Substance: CISPLATIN
     Indication: THYMOMA

REACTIONS (1)
  - Chronic kidney disease [Unknown]
